FAERS Safety Report 13603699 (Version 1)
Quarter: 2017Q2

REPORT INFORMATION
  Report Type: Spontaneous
  Country: US (occurrence: US)
  Receive Date: 20170602
  Receipt Date: 20170602
  Transmission Date: 20170830
  Serious: No
  Sender: FDA-Public Use
  Company Number: US-ASTRAZENECA-2017SE57868

PATIENT
  Age: 73 Year
  Sex: Male
  Weight: 73 kg

DRUGS (1)
  1. NEXIUM 24HR [Suspect]
     Active Substance: ESOMEPRAZOLE MAGNESIUM
     Indication: GASTROOESOPHAGEAL REFLUX DISEASE
     Route: 048
     Dates: start: 2017, end: 2017

REACTIONS (5)
  - Product selection error [Unknown]
  - Anal haemorrhage [Recovered/Resolved]
  - Constipation [Recovered/Resolved]
  - Malaise [Recovered/Resolved]
  - Drug intolerance [Unknown]

NARRATIVE: CASE EVENT DATE: 2017
